FAERS Safety Report 15027100 (Version 1)
Quarter: 2018Q2

REPORT INFORMATION
  Report Type: Report from Study
  Country: BE (occurrence: BE)
  Receive Date: 20180619
  Receipt Date: 20180619
  Transmission Date: 20180711
  Serious: Yes (Hospitalization)
  Sender: FDA-Public Use
  Company Number: BE-ROCHE-2136380

PATIENT
  Sex: Female
  Weight: 56 kg

DRUGS (3)
  1. ATEZOLIZUMAB. [Suspect]
     Active Substance: ATEZOLIZUMAB
     Indication: COLORECTAL CANCER
     Dosage: MOST RECENT DOSE ON 21/MAY/2018
     Route: 042
     Dates: start: 20180430
  2. ROCEPHIN [Concomitant]
     Active Substance: CEFTRIAXONE SODIUM
     Route: 065
     Dates: start: 20180509, end: 20180521
  3. BEVACIZUMAB. [Suspect]
     Active Substance: BEVACIZUMAB
     Indication: COLORECTAL CANCER
     Dosage: MOST RECENT DOSE ON 21/MAY/2018
     Route: 042
     Dates: start: 20180430

REACTIONS (1)
  - Fistula of small intestine [Not Recovered/Not Resolved]
